FAERS Safety Report 6279610-5 (Version None)
Quarter: 2009Q4

REPORT INFORMATION
  Report Type: 
  Country: None (occurrence: None)
  Receive Date: 20090721
  Receipt Date: 20090715
  Transmission Date: 20100525
  Serious: Yes (Death, Life-Threatening, Hospitalization)
  Sender: FDA-Public Use
  Company Number: GXKR2009DE08045

PATIENT
  Age: 85 Year
  Sex: Male

DRUGS (6)
  1. CAPTOHEXAL COMP (NGX) (CAPTOPRIL, HYDROCHLOROTHIAZIDE) TABLET [Suspect]
     Indication: HYPERTENSION
     Dates: start: 20080501, end: 20080717
  2. AGGRENOX [Suspect]
     Indication: CEREBROVASCULAR ACCIDENT
     Dates: start: 20080501, end: 20080717
  3. MADOPAR () [Suspect]
     Indication: CEREBROVASCULAR ACCIDENT
  4. TRIAMPUR (HYDROCHLOROTHIAZIDE, TRIAMTERENE) [Suspect]
     Indication: HYPERTENSION
  5. EXELON [Concomitant]
  6. METFORMIN HCL [Concomitant]

REACTIONS (4)
  - BLOOD SODIUM INCREASED [None]
  - METABOLIC ACIDOSIS [None]
  - RENAL FAILURE ACUTE [None]
  - THROMBOCYTOPENIA [None]
